FAERS Safety Report 18600547 (Version 1)
Quarter: 2020Q4

REPORT INFORMATION
  Report Type: Spontaneous
  Country: US (occurrence: US)
  Receive Date: 20201210
  Receipt Date: 20201210
  Transmission Date: 20210114
  Serious: Yes (Life-Threatening, Hospitalization, Disabling)
  Sender: FDA-Public Use
  Company Number: None

PATIENT
  Age: 58 Year
  Sex: Female

DRUGS (6)
  1. LYRICA [Suspect]
     Active Substance: PREGABALIN
     Indication: NEURALGIA
     Dosage: ?          QUANTITY:1 CAPSULE(S);?
     Route: 048
     Dates: end: 20201210
  2. HYDROCODONE [Suspect]
     Active Substance: HYDROCODONE
  3. MULTI VITAMIN [Concomitant]
     Active Substance: VITAMINS
  4. LYRICA [Suspect]
     Active Substance: PREGABALIN
     Indication: ERYTHROMELALGIA
     Dosage: ?          QUANTITY:1 CAPSULE(S);?
     Route: 048
     Dates: end: 20201210
  5. NEXIUM [Concomitant]
     Active Substance: ESOMEPRAZOLE MAGNESIUM
  6. ROTOPRONE BED [Suspect]
     Active Substance: DEVICE

REACTIONS (8)
  - Iatrogenic injury [None]
  - Product complaint [None]
  - Drug withdrawal syndrome [None]
  - Face injury [None]
  - Coma [None]
  - Scar [None]
  - Rib fracture [None]
  - Dyspnoea [None]

NARRATIVE: CASE EVENT DATE: 20170730
